FAERS Safety Report 6366077 (Version 15)
Quarter: 2012Q4

REPORT INFORMATION
  Report Type: 
  Country: US (occurrence: US)
  Receive Date: 20070724
  Receipt Date: 20120913
  Transmission Date: 20130627
  Serious: Yes (Death, Hospitalization, Other)
  Sender: FDA-Public Use
  Company Number: US-ALLERGAN-0707781US

PATIENT
  Age: 63 Year
  Sex: Male
  Weight: 118.82 kg

DRUGS (11)
  1. BOTOX [Suspect]
     Indication: DYSTONIA
     Dosage: 235 UNITS, single
     Route: 030
     Dates: start: 20070717, end: 20070717
  2. BOTOX [Suspect]
     Dosage: 80 UNITS, single
     Route: 030
     Dates: start: 20070109, end: 20070109
  3. BOTOX [Suspect]
     Dosage: 220 UNITS, single
     Route: 030
     Dates: start: 20070403, end: 20070403
  4. BOTOX [Suspect]
     Dosage: 235 UNK, UNK
     Route: 030
     Dates: start: 20070515, end: 20070515
  5. LISINOPRIL [Concomitant]
     Indication: BLOOD PRESSURE HIGH
     Dosage: 20 mg, qd
     Route: 048
  6. CODEINE W/PARACETAMOL [Concomitant]
     Indication: BACK PAIN
     Dosage: 30/300 mg prn
     Route: 048
  7. NIACIN [Concomitant]
     Indication: DYSLIPIDEMIA
     Dosage: 500 mg, qhs
     Route: 048
  8. SALSALATE [Concomitant]
     Indication: BACK PAIN
     Dosage: 750 mg, bid
     Route: 048
  9. VARDENAFIL [Concomitant]
     Indication: IMPOTENCE
     Dosage: 10 mg, 1 hour prior to activity
     Route: 048
  10. ASPIRIN [Concomitant]
     Dosage: 81 mg, qd
     Route: 048
  11. MULTIVITAMINS [Concomitant]
     Dosage: UNK
     Route: 048

REACTIONS (11)
  - Acute disseminated encephalomyelitis [Fatal]
  - Pyrexia [Recovered/Resolved]
  - Convulsion [Not Recovered/Not Resolved]
  - Chills [Recovered/Resolved]
  - Somnolence [Not Recovered/Not Resolved]
  - Rash generalised [Recovered/Resolved]
  - Drug hypersensitivity [Recovered/Resolved]
  - Urinary incontinence [Recovering/Resolving]
  - Mental status changes [Not Recovered/Not Resolved]
  - Ataxia [Not Recovered/Not Resolved]
  - Vascular dementia [Not Recovered/Not Resolved]
